FAERS Safety Report 4753010-9 (Version None)
Quarter: 2005Q3

REPORT INFORMATION
  Report Type: 
  Country: None (occurrence: None)
  Receive Date: 20050826
  Receipt Date: 20050815
  Transmission Date: 20060218
  Serious: Yes (Hospitalization)
  Sender: FDA-Public Use
  Company Number: FR-MERCK-0508FRA00028

PATIENT
  Age: 78 Year
  Sex: Female

DRUGS (2)
  1. PRIMAXIN [Suspect]
     Indication: DEVICE RELATED INFECTION
     Route: 042
  2. AMIKACIN [Concomitant]
     Indication: DEVICE RELATED INFECTION
     Route: 042

REACTIONS (1)
  - THERAPY NON-RESPONDER [None]
